FAERS Safety Report 20982595 (Version 2)
Quarter: 2023Q1

REPORT INFORMATION
  Report Type: Spontaneous
  Country: US (occurrence: US)
  Receive Date: 20220620
  Receipt Date: 20230113
  Transmission Date: 20230417
  Serious: No
  Sender: FDA-Public Use
  Company Number: US-NOVOPROD-918280

PATIENT
  Age: 31 Year
  Sex: Female

DRUGS (1)
  1. WEGOVY [Suspect]
     Active Substance: SEMAGLUTIDE
     Indication: Product used for unknown indication
     Dosage: 0.25 MG
     Route: 058
     Dates: start: 20220306

REACTIONS (8)
  - Malaise [Unknown]
  - Blood glucose decreased [Unknown]
  - Injection site haemorrhage [Unknown]
  - Injection site pain [Unknown]
  - Injection site discharge [Unknown]
  - Drug ineffective [Unknown]
  - Product quality issue [Unknown]
  - Device failure [Unknown]

NARRATIVE: CASE EVENT DATE: 20220301
